FAERS Safety Report 24888478 (Version 1)
Quarter: 2025Q1

REPORT INFORMATION
  Report Type: Spontaneous
  Country: EE (occurrence: EE)
  Receive Date: 20250127
  Receipt Date: 20250127
  Transmission Date: 20250409
  Serious: Yes (Hospitalization, Disabling)
  Sender: ACCORD
  Company Number: EE-MLMSERVICE-20241223-PI313753-00320-1

PATIENT
  Age: 32 Year
  Sex: Female

DRUGS (3)
  1. TOPIRAMATE [Suspect]
     Active Substance: TOPIRAMATE
     Indication: Headache
  2. LEVETIRACETAM [Concomitant]
     Active Substance: LEVETIRACETAM
     Indication: Generalised tonic-clonic seizure
  3. TOPIRAMATE [Suspect]
     Active Substance: TOPIRAMATE
     Indication: Headache

REACTIONS (2)
  - Angle closure glaucoma [Recovering/Resolving]
  - Accommodation disorder [Recovering/Resolving]
